FAERS Safety Report 6274588-2 (Version None)
Quarter: 2009Q3

REPORT INFORMATION
  Report Type: 
  Country: None (occurrence: None)
  Receive Date: 20090720
  Receipt Date: 20090710
  Transmission Date: 20100115
  Serious: Yes (Other)
  Sender: FDA-Public Use
  Company Number: US-AVENTIS-200915984US

PATIENT
  Age: 92 Year
  Sex: Female

DRUGS (2)
  1. LANTUS [Suspect]
     Dosage: DOSE: 22 U AT NIGHT 28 U IN MORNING
     Route: 058
     Dates: start: 20070101
  2. LANTUS [Suspect]
     Dosage: DOSE: 22 UNITS AT NIGHT AND 26 UNITS IN THE MORNING
     Route: 058

REACTIONS (4)
  - BLINDNESS [None]
  - BLOOD GLUCOSE DECREASED [None]
  - BLOOD GLUCOSE INCREASED [None]
  - MEDICATION ERROR [None]
